FAERS Safety Report 7018211-8 (Version None)
Quarter: 2010Q3

REPORT INFORMATION
  Report Type: 
  Country: None (occurrence: None)
  Receive Date: 20100928
  Receipt Date: 20100918
  Transmission Date: 20110219
  Serious: Yes (Hospitalization, Other)
  Sender: FDA-Public Use
  Company Number: CN-JNJFOC-20100906384

PATIENT
  Age: 7 Month
  Sex: Male
  Weight: 8 kg

DRUGS (5)
  1. TOPIRAMATE [Suspect]
     Indication: INFANTILE SPASMS
     Route: 048
  2. LEVETIRACETAM [Suspect]
     Indication: EPILEPSY
     Route: 048
  3. DEPAKENE [Suspect]
     Indication: INFANTILE SPASMS
     Route: 065
  4. PREDNISONE [Suspect]
     Indication: PRODUCT USED FOR UNKNOWN INDICATION
     Route: 065
  5. NITRAZEPAM [Suspect]
     Indication: EPILEPSY
     Dosage: 2.5MG,AM ; 1.25MG,PM
     Route: 065

REACTIONS (6)
  - DERMATITIS ALLERGIC [None]
  - DRUG INEFFECTIVE [None]
  - DRUG PRESCRIBING ERROR [None]
  - OPTIC ATROPHY [None]
  - UPPER RESPIRATORY TRACT INFECTION [None]
  - WRONG TECHNIQUE IN DRUG USAGE PROCESS [None]
